FAERS Safety Report 6177209-2 (Version None)
Quarter: 2009Q2

REPORT INFORMATION
  Report Type: 
  Country: None (occurrence: None)
  Receive Date: 20090504
  Receipt Date: 20090427
  Transmission Date: 20091009
  Serious: Yes (Hospitalization, Other)
  Sender: FDA-Public Use
  Company Number: PHHY2009FI15982

PATIENT
  Age: 23 Year
  Sex: Female

DRUGS (6)
  1. CARBAMAZEPINE [Suspect]
     Indication: EPILEPSY
  2. VALPROIC ACID [Suspect]
     Dosage: 1200 MG, DAILY
  3. VALPROIC ACID [Suspect]
     Dosage: 1500 MG, DAILY
  4. VALPROIC ACID [Suspect]
     Dosage: 900 MG,DAILY
  5. VALPROIC ACID [Suspect]
     Dosage: 700 MG, DAILY
  6. LYNESTRENOL-MESTRANOL [Suspect]
     Indication: AMENORRHOEA
     Dosage: 5 MG,DAILY

REACTIONS (5)
  - GAIT DISTURBANCE [None]
  - HEPATOTOXICITY [None]
  - JAUNDICE [None]
  - NAUSEA [None]
  - VOMITING [None]
